FAERS Safety Report 7682904-X (Version None)
Quarter: 2011Q3

REPORT INFORMATION
  Report Type: 
  Country: None (occurrence: None)
  Receive Date: 20110812
  Receipt Date: 20110812
  Transmission Date: 20111222
  Serious: Yes (Life-Threatening, Other)
  Sender: FDA-Public Use
  Company Number: None

PATIENT
  Sex: Female
  Weight: 83.9154 kg

DRUGS (2)
  1. CLARITHROMYCIN [Suspect]
     Indication: INFECTION
     Dosage: 3 TABS BY MOUTH 2X DAY FOR 3 DAYS 2 TABS BY MOUTH 2 X DAY FOR 3 DAYS 1 TABLET BY MOUTH 2X DAY FOR 7
     Dates: start: 20110624, end: 20110628
  2. PREDNISONE [Suspect]
     Indication: ASTHMA
     Dosage: 4 TABS. BY MOUTH 2X DAY FOR 3 DAYS 1 TAB BY MOUTH 1X DAY FOR 3 DAYS
     Dates: start: 20110624, end: 20110628

REACTIONS (24)
  - HYPERHIDROSIS [None]
  - POLLAKIURIA [None]
  - HALLUCINATION [None]
  - MUSCULOSKELETAL DISORDER [None]
  - DIZZINESS [None]
  - ABDOMINAL PAIN UPPER [None]
  - NERVOUSNESS [None]
  - MUSCLE SPASMS [None]
  - AGGRESSION [None]
  - THIRST [None]
  - EMOTIONAL DISORDER [None]
  - CRYING [None]
  - INSOMNIA [None]
  - FEELING HOT [None]
  - PERSONALITY CHANGE [None]
  - DYSGEUSIA [None]
  - CHROMATURIA [None]
  - FREQUENT BOWEL MOVEMENTS [None]
  - AGITATION [None]
  - DECREASED APPETITE [None]
  - ADRENAL DISORDER [None]
  - FEELING ABNORMAL [None]
  - VOMITING [None]
  - FATIGUE [None]
